FAERS Safety Report 19608845 (Version 1)
Quarter: 2021Q3

REPORT INFORMATION
  Report Type: Spontaneous
  Country: US (occurrence: US)
  Receive Date: 20210723
  Receipt Date: 20210723
  Transmission Date: 20211014
  Serious: Yes (Hospitalization)
  Sender: FDA-Public Use
  Company Number: None

PATIENT
  Age: 68 Year
  Sex: Female

DRUGS (6)
  1. LEVIOTHYROXIN [Concomitant]
  2. LIOTHYRONINE [Concomitant]
     Active Substance: LIOTHYRONINE
  3. CIMZIA [Suspect]
     Active Substance: CERTOLIZUMAB PEGOL
     Indication: RHEUMATOID ARTHRITIS
     Dosage: ?          OTHER FREQUENCY:Q28D;?
     Route: 058
     Dates: start: 20180219
  4. AMLODIPINE [Concomitant]
     Active Substance: AMLODIPINE BESYLATE
  5. TRAMADOL. [Concomitant]
     Active Substance: TRAMADOL
  6. VALSART [Concomitant]
     Active Substance: VALSARTAN

REACTIONS (1)
  - Surgery [None]

NARRATIVE: CASE EVENT DATE: 20210722
